FAERS Safety Report 14893712 (Version 1)
Quarter: 2018Q2

REPORT INFORMATION
  Report Type: Spontaneous
  Country: US (occurrence: US)
  Receive Date: 20180514
  Receipt Date: 20180514
  Transmission Date: 20180711
  Serious: Yes (Hospitalization, Other)
  Sender: FDA-Public Use
  Company Number: US-ENDO PHARMACEUTICALS INC-2018-036184

PATIENT
  Age: 53 Year
  Sex: Male

DRUGS (1)
  1. AVEED [Suspect]
     Active Substance: TESTOSTERONE UNDECANOATE
     Indication: MUSCLE BUILDING THERAPY
     Dosage: UNK UNKNOWN, UNKNOWN
     Route: 030

REACTIONS (4)
  - Pulmonary hypertension [Unknown]
  - Mitral valve incompetence [Unknown]
  - Cardiomyopathy [Unknown]
  - Intentional product misuse [Unknown]
